FAERS Safety Report 17899349 (Version 1)
Quarter: 2020Q2

REPORT INFORMATION
  Report Type: Report from Study
  Country: None (occurrence: RO)
  Receive Date: 20200615
  Receipt Date: 20200615
  Transmission Date: 20200714
  Serious: Yes (Death, Hospitalization, Other)
  Sender: FDA-Public Use
  Company Number: RO-ABBVIE-20K-135-3433566-00

PATIENT
  Age: 71 Year
  Sex: Male

DRUGS (1)
  1. DUODOPA [Suspect]
     Active Substance: CARBIDOPA\LEVODOPA
     Indication: PARKINSON^S DISEASE
     Dosage: DM=0.00??DC=3.80??ED=3.00??NRED=0;??DMN=0.00??DCN=2.00??EDN=2.00??NREDN=0
     Route: 050
     Dates: start: 20160119, end: 20200612

REACTIONS (3)
  - Pneumonia [Not Recovered/Not Resolved]
  - Cardio-respiratory arrest [Fatal]
  - Psychotic disorder [Not Recovered/Not Resolved]

NARRATIVE: CASE EVENT DATE: 20200602
